FAERS Safety Report 8117856-1 (Version None)
Quarter: 2012Q1

REPORT INFORMATION
  Report Type: 
  Country: None (occurrence: None)
  Receive Date: 20120207
  Receipt Date: 20120130
  Transmission Date: 20120608
  Serious: Yes (Other)
  Sender: FDA-Public Use
  Company Number: US-BAYER-200929813NA

PATIENT
  Age: 51 Year
  Sex: Male
  Weight: 105.8 kg

DRUGS (12)
  1. FIBRINKLEBER [Concomitant]
     Dosage: 4 ML, FROZEN BILLED
     Dates: start: 20040512
  2. MANNITOL [Concomitant]
     Dosage: UNK
     Dates: start: 20040512, end: 20040512
  3. TRASYLOL [Suspect]
     Indication: CORONARY ARTERY BYPASS
     Dosage: TEST DOSE: 200CC PUMP PRIME
     Route: 042
     Dates: start: 20040512
  4. HEPARIN [Concomitant]
     Dosage: UNK
     Dates: start: 20040512, end: 20040512
  5. TRASYLOL [Suspect]
     Dosage: LOADING DOSE: 500,000 UNITS
  6. OMNIPAQUE 140 [Concomitant]
     Indication: CATHETERISATION CARDIAC
     Dosage: 150 ML + 200 ML BILLED
     Dates: start: 20040511
  7. OMNIPAQUE 140 [Concomitant]
     Indication: INTRA-AORTIC BALLOON PLACEMENT
  8. ALTACE [Concomitant]
     Dosage: UNK
     Dates: start: 20040610
  9. DOBUTREX [Concomitant]
     Dosage: UNK
     Dates: start: 20040512, end: 20040512
  10. PROTAMINE SULFATE [Concomitant]
     Dosage: UNK
     Dates: start: 20040512, end: 20040512
  11. OMNIPAQUE 140 [Concomitant]
     Indication: ANGIOGRAM
  12. LIDOCAINE [Concomitant]
     Dosage: UNK
     Dates: start: 20040512, end: 20040512

REACTIONS (11)
  - RENAL INJURY [None]
  - STRESS [None]
  - UNEVALUABLE EVENT [None]
  - MULTI-ORGAN FAILURE [None]
  - RENAL IMPAIRMENT [None]
  - PAIN [None]
  - RENAL FAILURE [None]
  - INJURY [None]
  - ANXIETY [None]
  - FEAR [None]
  - EMOTIONAL DISTRESS [None]
